FAERS Safety Report 8347129-3 (Version None)
Quarter: 2012Q2

REPORT INFORMATION
  Report Type: 
  Country: None (occurrence: None)
  Receive Date: 20120509
  Receipt Date: 20120503
  Transmission Date: 20120825
  Serious: Yes (Other)
  Sender: FDA-Public Use
  Company Number: US-ASTRAZENECA-2012SE28771

PATIENT
  Age: 54 Year
  Sex: Male

DRUGS (3)
  1. BRILINTA [Suspect]
     Indication: ACUTE CORONARY SYNDROME
     Route: 048
  2. METOPROLOL SUCCINATE [Suspect]
     Route: 048
  3. PRAVASTATIN [Suspect]
     Route: 065

REACTIONS (1)
  - RASH MACULO-PAPULAR [None]
